FAERS Safety Report 11563066 (Version 1)
Quarter: 2015Q3

REPORT INFORMATION
  Report Type: Spontaneous
  Country: US (occurrence: US)
  Receive Date: 20150928
  Receipt Date: 20150928
  Transmission Date: 20151125
  Serious: Yes (Other)
  Sender: FDA-Public Use
  Company Number: US-009507513-1509USA011809

PATIENT
  Age: 64 Year
  Sex: Female

DRUGS (14)
  1. VITAMINS (UNSPECIFIED) [Concomitant]
     Active Substance: VITAMINS
  2. MORPHINE SULFATE. [Concomitant]
     Active Substance: MORPHINE SULFATE
  3. NOXAFIL [Suspect]
     Active Substance: POSACONAZOLE
     Dosage: SECOND MAINTENANCE DOSE
     Route: 042
     Dates: start: 20150918
  4. LEVOTHYROXINE SODIUM. [Concomitant]
     Active Substance: LEVOTHYROXINE SODIUM
  5. NOXAFIL [Suspect]
     Active Substance: POSACONAZOLE
     Indication: FEBRILE NEUTROPENIA
     Dosage: TWO LOADING DOSES
     Route: 042
     Dates: start: 20150916
  6. NOXAFIL [Suspect]
     Active Substance: POSACONAZOLE
     Dosage: FIRST MAINTENANCE DOSE
     Route: 042
     Dates: start: 20150917, end: 20150917
  7. FOSINOPRIL SODIUM. [Concomitant]
     Active Substance: FOSINOPRIL SODIUM
  8. HYDROCHLOROTHIAZIDE. [Concomitant]
     Active Substance: HYDROCHLOROTHIAZIDE
  9. DOCUSATE SODIUM. [Concomitant]
     Active Substance: DOCUSATE SODIUM
  10. SUCRALFATE. [Concomitant]
     Active Substance: SUCRALFATE
  11. MEROPENEM. [Concomitant]
     Active Substance: MEROPENEM
  12. CHOLECALCIFEROL [Concomitant]
     Active Substance: CHOLECALCIFEROL
  13. PANTOPRAZOLE [Concomitant]
     Active Substance: PANTOPRAZOLE SODIUM
  14. SODIUM CHLORIDE. [Concomitant]
     Active Substance: SODIUM CHLORIDE

REACTIONS (5)
  - Product deposit [Unknown]
  - Surgery [Unknown]
  - Product quality issue [Unknown]
  - Central venous catheterisation [Unknown]
  - Device occlusion [Unknown]

NARRATIVE: CASE EVENT DATE: 20150918
